FAERS Safety Report 9918744 (Version 2)
Quarter: 2014Q2

REPORT INFORMATION
  Report Type: Spontaneous
  Country: US (occurrence: US)
  Receive Date: 20140224
  Receipt Date: 20140408
  Transmission Date: 20141212
  Serious: Yes (Hospitalization)
  Sender: FDA-Public Use
  Company Number: US-AMGEN-USASP2014011776

PATIENT
  Sex: 0

DRUGS (2)
  1. SENSIPAR [Suspect]
     Indication: PRODUCT USED FOR UNKNOWN INDICATION
     Dosage: 30 MG, QD
     Route: 065
  2. ERGOCALCIFEROL [Concomitant]
     Dosage: 50000 UNIT, UNK

REACTIONS (8)
  - Craniocerebral injury [Unknown]
  - General physical health deterioration [Unknown]
  - Weight decreased [Unknown]
  - Arthralgia [Unknown]
  - Abdominal pain [Unknown]
  - Asthenia [Unknown]
  - Constipation [Unknown]
  - Decreased appetite [Unknown]
